FAERS Safety Report 7113265-2 (Version None)
Quarter: 2010Q4

REPORT INFORMATION
  Report Type: 
  Country: None (occurrence: None)
  Receive Date: 20101119
  Receipt Date: 20100510
  Transmission Date: 20110411
  Serious: No
  Sender: FDA-Public Use
  Company Number: A0858943A

PATIENT
  Sex: Female

DRUGS (7)
  1. WELLBUTRIN SR [Suspect]
     Indication: DEPRESSION
     Dosage: 15MG TWICE PER DAY
     Route: 048
     Dates: start: 20100508
  2. MULTI-VITAMIN [Concomitant]
  3. B VITAMIN [Concomitant]
  4. BIRTH CONTROL [Concomitant]
  5. UNKNOWN MEDICATION [Concomitant]
  6. VALERIAN [Concomitant]
  7. AMINO ACIDS [Concomitant]

REACTIONS (5)
  - FEELING JITTERY [None]
  - HOT FLUSH [None]
  - HYPOAESTHESIA FACIAL [None]
  - HYPOAESTHESIA ORAL [None]
  - PARAESTHESIA [None]
